FAERS Safety Report 20472800 (Version 1)
Quarter: 2022Q1

REPORT INFORMATION
  Report Type: Spontaneous
  Country: US (occurrence: US)
  Receive Date: 20220215
  Receipt Date: 20220215
  Transmission Date: 20220423
  Serious: No
  Sender: FDA-Public Use
  Company Number: US-Hikma Pharmaceuticals USA Inc.-US-H14001-21-01828

PATIENT
  Sex: Female

DRUGS (2)
  1. DESVENLAFAXINE [Suspect]
     Active Substance: DESVENLAFAXINE
     Indication: Product used for unknown indication
     Route: 048
  2. LISINOPRIL [Concomitant]
     Active Substance: LISINOPRIL
     Indication: Product used for unknown indication
     Dosage: UNKNOWN
     Route: 065

REACTIONS (3)
  - Product residue present [Not Recovered/Not Resolved]
  - Drug ineffective [Not Recovered/Not Resolved]
  - Crying [Not Recovered/Not Resolved]
